FAERS Safety Report 19485674 (Version 1)
Quarter: 2021Q3

REPORT INFORMATION
  Report Type: Spontaneous
  Country: US (occurrence: US)
  Receive Date: 20210701
  Receipt Date: 20210701
  Transmission Date: 20211014
  Serious: No
  Sender: FDA-Public Use
  Company Number: None

PATIENT
  Age: 64 Year
  Sex: Female

DRUGS (1)
  1. UBROGEPANT 100MG [Suspect]
     Active Substance: UBROGEPANT

REACTIONS (3)
  - Drug interaction [None]
  - Malignant hypertension [None]
  - Migraine [None]
